FAERS Safety Report 23773117 (Version 1)
Quarter: 2024Q2

REPORT INFORMATION
  Report Type: Report from Study
  Country: ES (occurrence: ES)
  Receive Date: 20240423
  Receipt Date: 20240423
  Transmission Date: 20240715
  Serious: Yes (Disabling)
  Sender: FDA-Public Use
  Company Number: ES-TEVA-VS-3157438

PATIENT
  Age: 77 Year
  Sex: Female

DRUGS (9)
  1. TERIPARATIDE [Suspect]
     Active Substance: TERIPARATIDE
     Indication: Osteoporosis
     Dosage: 20MCG/80MCL
     Route: 065
     Dates: start: 20240116
  2. DIAMICRON [Concomitant]
     Indication: Type 2 diabetes mellitus
  3. DAPAGLIFLOZIN [Concomitant]
     Active Substance: DAPAGLIFLOZIN
     Indication: Type 2 diabetes mellitus
  4. CARBIDOPA\LEVODOPA [Concomitant]
     Active Substance: CARBIDOPA\LEVODOPA
     Indication: Parkinson^s disease
  5. ASPIRIN [Concomitant]
     Active Substance: ASPIRIN
     Indication: Platelet aggregation abnormal
  6. DURFENTA [Concomitant]
     Indication: Pain
     Route: 065
  7. METFORMIN HYDROCHLORIDE\VILDAGLIPTIN [Concomitant]
     Active Substance: METFORMIN HYDROCHLORIDE\VILDAGLIPTIN
     Indication: Type 2 diabetes mellitus
  8. NEXIUM [Concomitant]
     Active Substance: ESOMEPRAZOLE MAGNESIUM
     Indication: Gastrointestinal disorder
  9. IRBESARTAN [Concomitant]
     Active Substance: IRBESARTAN
     Indication: Hypertension

REACTIONS (8)
  - Nervousness [Not Recovered/Not Resolved]
  - Dry mouth [Not Recovered/Not Resolved]
  - Fatigue [Not Recovered/Not Resolved]
  - Stomatitis [Not Recovered/Not Resolved]
  - Tachycardia [Not Recovered/Not Resolved]
  - Vomiting [Not Recovered/Not Resolved]
  - Tremor [Not Recovered/Not Resolved]
  - Malaise [Not Recovered/Not Resolved]

NARRATIVE: CASE EVENT DATE: 20240203
